FAERS Safety Report 17868214 (Version 2)
Quarter: 2020Q3

REPORT INFORMATION
  Report Type: Report from Study
  Country: TW (occurrence: TW)
  Receive Date: 20200605
  Receipt Date: 20200723
  Transmission Date: 20201103
  Serious: Yes (Hospitalization, Other)
  Sender: FDA-Public Use
  Company Number: TW-TAKEDA-2020TUS024862

PATIENT
  Age: 50 Year
  Sex: Female

DRUGS (3)
  1. AZATHIOPRINE. [Concomitant]
     Active Substance: AZATHIOPRINE
     Dosage: UNK
     Dates: start: 20200511
  2. VEDOLIZUMAB [Suspect]
     Active Substance: VEDOLIZUMAB
     Indication: CROHN^S DISEASE
     Dosage: 300 MILLIGRAM
     Route: 042
     Dates: start: 20191007
  3. AZATHIOPRINE. [Concomitant]
     Active Substance: AZATHIOPRINE
     Dosage: UNK
     Dates: start: 20190828, end: 20190909

REACTIONS (4)
  - Enterocutaneous fistula [Unknown]
  - Proctitis [Unknown]
  - Subcutaneous abscess [Unknown]
  - Abscess limb [Unknown]
